FAERS Safety Report 25460976 (Version 1)
Quarter: 2025Q2

REPORT INFORMATION
  Report Type: Spontaneous
  Country: US (occurrence: None)
  Receive Date: 20250618
  Receipt Date: 20250618
  Transmission Date: 20250717
  Serious: No
  Sender: FDA-CTU
  Company Number: None

PATIENT

DRUGS (1)
  1. EPCLUSA [Suspect]
     Active Substance: SOFOSBUVIR\VELPATASVIR

REACTIONS (6)
  - Headache [None]
  - Nasopharyngitis [None]
  - Dyspnoea [None]
  - Throat irritation [None]
  - Therapy interrupted [None]
  - Product dose omission in error [None]
